FAERS Safety Report 5767269-2 (Version None)
Quarter: 2008Q2

REPORT INFORMATION
  Report Type: 
  Country: None (occurrence: None)
  Receive Date: 20080513
  Receipt Date: 20080513
  Transmission Date: 20081010
  Serious: Yes (Hospitalization)
  Sender: FDA-Public Use
  Company Number: None

PATIENT
  Age: 55 Year
  Sex: Male
  Weight: 93.89 kg

DRUGS (1)
  1. SORAFENIB  250 MG BID  BAYER [Suspect]
     Indication: BRAIN NEOPLASM
     Dosage: 250 MG TWICE A DAY PO
     Route: 048
     Dates: start: 20080331, end: 20080503

REACTIONS (4)
  - GRAND MAL CONVULSION [None]
  - HEAD INJURY [None]
  - LOSS OF CONSCIOUSNESS [None]
  - MENTAL DISORDER [None]
